FAERS Safety Report 24964881 (Version 1)
Quarter: 2025Q1

REPORT INFORMATION
  Report Type: Spontaneous
  Country: GB (occurrence: GB)
  Receive Date: 20250213
  Receipt Date: 20250213
  Transmission Date: 20250409
  Serious: Yes (Other)
  Sender: ACCORD
  Company Number: None

PATIENT
  Age: 24 Year
  Sex: Female

DRUGS (1)
  1. SERTRALINE [Suspect]
     Active Substance: SERTRALINE HYDROCHLORIDE
     Indication: Adverse drug reaction
     Dates: start: 20250119, end: 20250126

REACTIONS (5)
  - Confusional state [Recovering/Resolving]
  - Amnesia [Recovering/Resolving]
  - Vomiting [Recovered/Resolved]
  - Balance disorder [Recovered/Resolved]
  - Myalgia [Recovered/Resolved]
